FAERS Safety Report 19299739 (Version 1)
Quarter: 2021Q2

REPORT INFORMATION
  Report Type: Spontaneous
  Country: US (occurrence: US)
  Receive Date: 20210525
  Receipt Date: 20210525
  Transmission Date: 20210717
  Serious: Yes (Hospitalization, Other)
  Sender: FDA-Public Use
  Company Number: US-CIPLA LTD.-2021US03671

PATIENT

DRUGS (1)
  1. WARFARIN [Suspect]
     Active Substance: WARFARIN
     Indication: ANTICOAGULANT THERAPY
     Dosage: UNK
     Route: 065

REACTIONS (6)
  - Abortion spontaneous [Unknown]
  - Acute respiratory failure [Unknown]
  - Prosthetic cardiac valve thrombosis [Unknown]
  - Pulmonary oedema [Unknown]
  - Exposure during pregnancy [Unknown]
  - Therapy cessation [Unknown]
